FAERS Safety Report 11828497 (Version 1)
Quarter: 2015Q4

REPORT INFORMATION
  Report Type: Spontaneous
  Country: US (occurrence: US)
  Receive Date: 20151211
  Receipt Date: 20151211
  Transmission Date: 20160305
  Serious: No
  Sender: FDA-Public Use
  Company Number: US-BAUSCH-BL-2015-004082

PATIENT
  Sex: Male
  Weight: 62.65 kg

DRUGS (10)
  1. XENAZINE [Suspect]
     Active Substance: TETRABENAZINE
     Route: 048
     Dates: start: 20150505
  2. CATAPRES [Concomitant]
     Active Substance: CLONIDINE HYDROCHLORIDE
     Indication: HYPERTENSION
     Dosage: 0.3 MG TID AND 0.1 MG PRN
     Dates: start: 201407
  3. DOMPERIDONE [Concomitant]
     Active Substance: DOMPERIDONE
     Indication: PRODUCT USED FOR UNKNOWN INDICATION
  4. ARTANE [Suspect]
     Active Substance: TRIHEXYPHENIDYL HYDROCHLORIDE
     Indication: MYALGIA
     Dates: start: 20150523
  5. XENAZINE [Suspect]
     Active Substance: TETRABENAZINE
     Indication: CHOREA
     Route: 048
     Dates: start: 20150224
  6. ARTANE [Suspect]
     Active Substance: TRIHEXYPHENIDYL HYDROCHLORIDE
     Indication: DYSKINESIA
  7. VITAMIN B12 [Concomitant]
     Active Substance: CYANOCOBALAMIN
     Indication: VITAMIN B12 DEFICIENCY
  8. NITRO [Concomitant]
     Active Substance: NITROGLYCERIN
     Indication: PRODUCT USED FOR UNKNOWN INDICATION
  9. ZOFRAN [Concomitant]
     Active Substance: ONDANSETRON HYDROCHLORIDE
     Indication: NAUSEA
  10. SCOPALAMINE PATCHES [Concomitant]
     Indication: NAUSEA

REACTIONS (28)
  - Limb injury [Unknown]
  - Skin fissures [Recovering/Resolving]
  - Condition aggravated [Recovering/Resolving]
  - Chest pain [Not Recovered/Not Resolved]
  - Pain [Not Recovered/Not Resolved]
  - Musculoskeletal pain [Recovering/Resolving]
  - Dizziness [Recovered/Resolved]
  - Malabsorption [Unknown]
  - Heart rate increased [Not Recovered/Not Resolved]
  - Vomiting [Unknown]
  - Psychiatric symptom [Recovered/Resolved]
  - Muscle spasms [Recovering/Resolving]
  - Memory impairment [Recovering/Resolving]
  - Insomnia [Unknown]
  - Unevaluable event [Unknown]
  - Impaired gastric emptying [Unknown]
  - Gastrooesophageal reflux disease [Unknown]
  - Feeling abnormal [Unknown]
  - Tremor [Recovering/Resolving]
  - Weight decreased [Unknown]
  - Dyskinesia [Unknown]
  - Dyskinesia [Recovering/Resolving]
  - Contusion [Recovering/Resolving]
  - Feeling abnormal [Not Recovered/Not Resolved]
  - Pain in extremity [Recovering/Resolving]
  - Nausea [Unknown]
  - Depression [Unknown]
  - Muscle twitching [Recovering/Resolving]

NARRATIVE: CASE EVENT DATE: 2015
